FAERS Safety Report 5538015-2 (Version None)
Quarter: 2007Q4

REPORT INFORMATION
  Report Type: 
  Country: None (occurrence: None)
  Receive Date: 20071207
  Receipt Date: 20071206
  Transmission Date: 20080405
  Serious: Yes (Other)
  Sender: FDA-Public Use
  Company Number: US-BOEHRINGER INGELHEIM PHARMACEUTICALS, INC.-2007-BP-25672BP

PATIENT
  Age: 72 Year

DRUGS (2)
  1. SPIRIVA [Suspect]
     Route: 055
  2. PROTON PUMP INHIBITOR [Suspect]

REACTIONS (2)
  - AORTIC ANEURYSM [None]
  - DEMENTIA [None]
